FAERS Safety Report 14612966 (Version 1)
Quarter: 2018Q1

REPORT INFORMATION
  Report Type: Report from Study
  Country: US (occurrence: US)
  Receive Date: 20180308
  Receipt Date: 20180308
  Transmission Date: 20180509
  Serious: No
  Sender: FDA-Public Use
  Company Number: US-CELGENEUS-USA-20180208609

PATIENT
  Sex: Female

DRUGS (6)
  1. OTEZLA [Suspect]
     Active Substance: APREMILAST
     Indication: OFF LABEL USE
     Dosage: 20 MILLIGRAM
     Route: 048
  2. OTEZLA [Suspect]
     Active Substance: APREMILAST
     Dosage: 20 MG+30 MG
     Route: 048
  3. OTEZLA [Suspect]
     Active Substance: APREMILAST
     Dosage: 40 MILLIGRAM
     Route: 048
  4. OTEZLA [Suspect]
     Active Substance: APREMILAST
     Dosage: 10 MG+20 MG
     Route: 048
  5. OTEZLA [Suspect]
     Active Substance: APREMILAST
     Indication: ARTHRITIS
     Dosage: 10 MILLIGRAM
     Route: 048
  6. OTEZLA [Suspect]
     Active Substance: APREMILAST
     Dosage: 60 MILLIGRAM
     Route: 048

REACTIONS (20)
  - Flatulence [Not Recovered/Not Resolved]
  - Therapy non-responder [Unknown]
  - Peripheral swelling [Unknown]
  - Stress [Recovering/Resolving]
  - Abdominal pain upper [Recovering/Resolving]
  - Irritability [Unknown]
  - Tremor [Recovering/Resolving]
  - Abdominal distension [Not Recovered/Not Resolved]
  - Anxiety [Recovering/Resolving]
  - Pain [Not Recovered/Not Resolved]
  - Disturbance in attention [Recovering/Resolving]
  - Headache [Recovered/Resolved]
  - Weight decreased [Recovered/Resolved]
  - Nausea [Recovering/Resolving]
  - Rash [Unknown]
  - Pain in extremity [Recovering/Resolving]
  - Diarrhoea [Not Recovered/Not Resolved]
  - Formication [Unknown]
  - Malaise [Recovering/Resolving]
  - Arthritis [Recovering/Resolving]
